FAERS Safety Report 8849551 (Version 1)
Quarter: 2012Q4

REPORT INFORMATION
  Report Type: Spontaneous
  Country: US (occurrence: None)
  Receive Date: 20121018
  Receipt Date: 20121018
  Transmission Date: 20130627
  Serious: Yes (Hospitalization)
  Sender: FDA-Public Use
  Company Number: None

PATIENT
  Age: 65 Year
  Sex: Female
  Weight: 72.58 kg

DRUGS (6)
  1. ROZEREM [Suspect]
     Indication: SLEEP DISORDER THERAPY
     Route: 048
     Dates: start: 20120801, end: 20121010
  2. LIPITOR [Concomitant]
  3. PLAVIX [Concomitant]
  4. LATUDA [Concomitant]
  5. ZPYREXA [Concomitant]
  6. BUPROPROIN [Concomitant]

REACTIONS (1)
  - Product quality issue [None]
